FAERS Safety Report 5310021-2 (Version None)
Quarter: 2007Q2

REPORT INFORMATION
  Report Type: 
  Country: None (occurrence: None)
  Receive Date: 20070427
  Receipt Date: 20070424
  Transmission Date: 20071010
  Serious: Yes (Other)
  Sender: FDA-Public Use
  Company Number: US-GLAXOSMITHKLINE-A0639712A

PATIENT
  Age: 17 Year
  Sex: Male

DRUGS (3)
  1. ADVAIR DISKUS 100/50 [Suspect]
     Indication: ASTHMA
     Route: 055
     Dates: start: 20070131, end: 20070202
  2. TEGRETOL [Suspect]
     Route: 065
  3. CEFUROXIME AXETIL [Concomitant]

REACTIONS (1)
  - CONVULSION [None]
